FAERS Safety Report 8446944 (Version 3)
Quarter: 2012Q4

REPORT INFORMATION
  Report Type: 
  Country: FR (occurrence: FR)
  Receive Date: 20120308
  Receipt Date: 20121212
  Transmission Date: 20130627
  Serious: Yes (Other)
  Sender: FDA-Public Use
  Company Number: FR-JNJFOC-20120300299

PATIENT
  Age: 14 Year
  Sex: Female

DRUGS (5)
  1. REMICADE [Suspect]
     Indication: CROHN^S DISEASE
     Route: 042
     Dates: start: 20100820
  2. REMICADE [Suspect]
     Indication: CROHN^S DISEASE
     Route: 042
     Dates: start: 20100901
  3. REMICADE [Suspect]
     Indication: CROHN^S DISEASE
     Route: 042
     Dates: start: 20100929
  4. IMUREL [Suspect]
     Indication: CROHN^S DISEASE
     Dosage: 100 mg/day
     Route: 048
     Dates: start: 201008
  5. IMUREL [Suspect]
     Indication: CROHN^S DISEASE
     Route: 048
     Dates: start: 201110

REACTIONS (1)
  - Pseudolymphoma [Recovering/Resolving]
